FAERS Safety Report 11771615 (Version 1)
Quarter: 2015Q4

REPORT INFORMATION
  Report Type: Spontaneous
  Country: SK (occurrence: SK)
  Receive Date: 20151124
  Receipt Date: 20151124
  Transmission Date: 20160304
  Serious: Yes (Hospitalization, Other)
  Sender: FDA-Public Use
  Company Number: SK-BAYER-2015-466891

PATIENT
  Age: 48 Year
  Sex: Female

DRUGS (3)
  1. EUTHYROX [Concomitant]
     Active Substance: LEVOTHYROXINE SODIUM
     Dosage: 25 ?G, ONCE
     Route: 048
  2. MIRENA [Suspect]
     Active Substance: LEVONORGESTREL
     Dosage: 20 MCG/24HR, CONT
     Route: 015
     Dates: start: 20140319, end: 20140815
  3. SORBIFER DURULES [Concomitant]
     Active Substance: FERROUS SULFATE\FERROUS SULFATE, DRIED
     Indication: HYPOCHROMIC ANAEMIA
     Dosage: UNK
     Route: 048

REACTIONS (10)
  - Dermatomyositis [None]
  - Myalgia [None]
  - Rash [Recovered/Resolved]
  - Fatigue [None]
  - Rectal examination abnormal [None]
  - Aphthous ulcer [None]
  - Dermatitis [None]
  - Asthenia [None]
  - Dysphagia [None]
  - Pulmonary mass [None]

NARRATIVE: CASE EVENT DATE: 2014
